APPROVED DRUG PRODUCT: NEOMYCIN AND POLYMYXIN B SULFATES AND HYDROCORTISONE
Active Ingredient: HYDROCORTISONE; NEOMYCIN SULFATE; POLYMYXIN B SULFATE
Strength: 1%;EQ 3.5MG BASE/ML;10,000 UNITS/ML
Dosage Form/Route: SUSPENSION/DROPS;OPHTHALMIC
Application: A062874 | Product #001
Applicant: SANDOZ INC
Approved: May 11, 1988 | RLD: No | RS: Yes | Type: RX